FAERS Safety Report 25720160 (Version 1)
Quarter: 2025Q3

REPORT INFORMATION
  Report Type: Spontaneous
  Country: US (occurrence: US)
  Receive Date: 20250825
  Receipt Date: 20250825
  Transmission Date: 20251021
  Serious: No
  Sender: GILEAD
  Company Number: US-GILEAD-2025-0724415

PATIENT
  Age: 83 Year
  Sex: Female

DRUGS (2)
  1. CAYSTON [Suspect]
     Active Substance: AZTREONAM
     Indication: Bronchiectasis
     Route: 055
     Dates: start: 20250812
  2. CAYSTON [Suspect]
     Active Substance: AZTREONAM
     Indication: Pneumonia

REACTIONS (1)
  - Product use in unapproved indication [Not Recovered/Not Resolved]
